FAERS Safety Report 13511755 (Version 3)
Quarter: 2018Q1

REPORT INFORMATION
  Report Type: Spontaneous
  Country: GB (occurrence: GB)
  Receive Date: 20170504
  Receipt Date: 20180131
  Transmission Date: 20180508
  Serious: Yes (Death, Other)
  Sender: FDA-Public Use
  Company Number: GB-MYLANLABS-2017M1027143

PATIENT
  Age: 41 Year
  Sex: Female

DRUGS (11)
  1. HYOSCINE [Concomitant]
     Active Substance: SCOPOLAMINE
     Indication: BORDERLINE PERSONALITY DISORDER
  2. CLOZARIL [Suspect]
     Active Substance: CLOZAPINE
     Indication: MAJOR DEPRESSION
  3. CLOZARIL [Suspect]
     Active Substance: CLOZAPINE
     Indication: BORDERLINE PERSONALITY DISORDER
  4. SULPIRIDE [Concomitant]
     Active Substance: SULPIRIDE
     Indication: BORDERLINE PERSONALITY DISORDER
     Dosage: 600 MG, PM
  5. HYOSCINE [Concomitant]
     Active Substance: SCOPOLAMINE
     Indication: MAJOR DEPRESSION
     Dosage: 300 MG, TID
  6. HYDROBROMIDE DEXTROMETHORPHAN [Concomitant]
     Indication: BORDERLINE PERSONALITY DISORDER
  7. CLOZARIL [Suspect]
     Active Substance: CLOZAPINE
     Indication: SCHIZOPHRENIA
     Dosage: 450 MG, PM
     Route: 048
     Dates: start: 20101214
  8. MIRTAZAPINE. [Concomitant]
     Active Substance: MIRTAZAPINE
     Indication: BORDERLINE PERSONALITY DISORDER
  9. SULPIRIDE [Concomitant]
     Active Substance: SULPIRIDE
     Indication: MAJOR DEPRESSION
     Dosage: 200 MG, AM
  10. MIRTAZAPINE. [Concomitant]
     Active Substance: MIRTAZAPINE
     Indication: MAJOR DEPRESSION
     Dosage: 45 MG, PM
  11. HYDROBROMIDE DEXTROMETHORPHAN [Concomitant]
     Indication: MAJOR DEPRESSION
     Dosage: UNK

REACTIONS (3)
  - Malignant blue naevus [Fatal]
  - Terminal state [Unknown]
  - Product use in unapproved indication [Unknown]

NARRATIVE: CASE EVENT DATE: 20101214
